FAERS Safety Report 13442854 (Version 1)
Quarter: 2017Q2

REPORT INFORMATION
  Report Type: Spontaneous
  Country: US (occurrence: US)
  Receive Date: 20170414
  Receipt Date: 20170414
  Transmission Date: 20170830
  Serious: Yes (Death, Life-Threatening, Other)
  Sender: FDA-Public Use
  Company Number: US-BRISTOL-MYERS SQUIBB COMPANY-BMS-2017-030928

PATIENT
  Age: 68 Year

DRUGS (1)
  1. ELIQUIS [Suspect]
     Active Substance: APIXABAN
     Indication: PRODUCT USED FOR UNKNOWN INDICATION
     Dosage: UNK
     Route: 065
     Dates: start: 201503, end: 201506

REACTIONS (5)
  - Haemorrhage [Unknown]
  - Anxiety [Unknown]
  - Injury [Unknown]
  - Sudden death [Fatal]
  - Pain [Unknown]

NARRATIVE: CASE EVENT DATE: 20150622
